FAERS Safety Report 4359602-3 (Version None)
Quarter: 2004Q2

REPORT INFORMATION
  Report Type: 
  Country: None (occurrence: None)
  Receive Date: 20040513
  Receipt Date: 20040430
  Transmission Date: 20050107
  Serious: Yes (Other)
  Sender: FDA-Public Use
  Company Number: 2004025020

PATIENT
  Age: 62 Year
  Sex: Female
  Weight: 81.6475 kg

DRUGS (3)
  1. ZOLOFT [Suspect]
     Indication: OBSESSIVE-COMPULSIVE DISORDER
     Dosage: 25 MG (1 IN 1 D), ORAL
     Route: 048
     Dates: start: 20030101
  2. CONJUGATED ESTROGENS [Concomitant]
  3. TEMAZEPAM [Concomitant]

REACTIONS (11)
  - DIZZINESS [None]
  - FEAR [None]
  - FEELING ABNORMAL [None]
  - INSOMNIA [None]
  - MEDICATION ERROR [None]
  - OBSESSIVE-COMPULSIVE DISORDER [None]
  - PALPITATIONS [None]
  - SEDATION [None]
  - SOMNOLENCE [None]
  - SUICIDAL IDEATION [None]
  - SYSTEMIC LUPUS ERYTHEMATOSUS [None]
